FAERS Safety Report 7811288-9 (Version None)
Quarter: 2011Q4

REPORT INFORMATION
  Report Type: 
  Country: None (occurrence: None)
  Receive Date: 20111013
  Receipt Date: 20111012
  Transmission Date: 20120403
  Serious: Yes (Other)
  Sender: FDA-Public Use
  Company Number: IT-SANOFI-AVENTIS-2011SA019065

PATIENT
  Age: 85 Year
  Sex: Male

DRUGS (5)
  1. MULTAQ [Suspect]
     Route: 048
     Dates: start: 20101001, end: 20110315
  2. DIURETICS [Concomitant]
     Route: 065
  3. PLATELETS [Concomitant]
     Route: 065
  4. VENLAFAXINE [Concomitant]
     Route: 048
  5. ANTIHYPERTENSIVES [Concomitant]
     Route: 065

REACTIONS (3)
  - HYPOTHYROIDISM [None]
  - THYROXINE DECREASED [None]
  - BLOOD THYROID STIMULATING HORMONE INCREASED [None]
